FAERS Safety Report 8196575-X (Version None)
Quarter: 2012Q1

REPORT INFORMATION
  Report Type: 
  Country: None (occurrence: None)
  Receive Date: 20120309
  Receipt Date: 20120229
  Transmission Date: 20120608
  Serious: Yes (Other)
  Sender: FDA-Public Use
  Company Number: JP-JNJFOC-20111202457

PATIENT
  Sex: Male
  Weight: 76 kg

DRUGS (6)
  1. PENTASA [Concomitant]
     Indication: CROHN'S DISEASE
     Dosage: DOSE FOR ONE TREATMENT 250 MG
     Route: 048
     Dates: start: 20091222
  2. TALION [Concomitant]
     Indication: PREMEDICATION
     Route: 048
     Dates: start: 20110828, end: 20110910
  3. REMICADE [Suspect]
     Route: 042
     Dates: start: 20091229
  4. ELENTAL [Concomitant]
     Route: 048
  5. REMICADE [Suspect]
     Indication: CROHN'S DISEASE
     Route: 042
     Dates: start: 20110903
  6. FAMOTIDINE [Concomitant]
     Indication: GASTRITIS
     Dosage: DOSE FOR ONE TREATMENT 10 MG
     Route: 048
     Dates: start: 20100112

REACTIONS (1)
  - HENOCH-SCHONLEIN PURPURA [None]
